FAERS Safety Report 5442555-4 (Version None)
Quarter: 2007Q3

REPORT INFORMATION
  Report Type: 
  Country: None (occurrence: None)
  Receive Date: 20070904
  Receipt Date: 20070824
  Transmission Date: 20080115
  Serious: Yes (Other)
  Sender: FDA-Public Use
  Company Number: PHEH2007US04327

PATIENT
  Sex: Female

DRUGS (27)
  1. ZELNORM [Suspect]
     Indication: CONSTIPATION
     Dosage: 6 MG, BID
     Route: 048
     Dates: start: 20051104, end: 20070402
  2. FIBER [Concomitant]
  3. HUMIRA [Concomitant]
  4. LIDODERM [Concomitant]
  5. METHOTREXATE [Concomitant]
  6. PREDNISONE [Suspect]
     Dosage: UNK MG, UNK
  7. PREDNISONE [Suspect]
     Dosage: UNK MG, UNK
  8. AMBIEN [Concomitant]
     Dosage: 12.5 MG, UNK
  9. ZOLOFT [Concomitant]
     Dosage: 100 MG, UNK
  10. VITAMIN D [Concomitant]
  11. TUMS [Concomitant]
     Dosage: UNK, BID
  12. TRAMADOL HCL [Concomitant]
     Dosage: UNK, QID
  13. SPIRIVA [Concomitant]
  14. PROVENTIL [Concomitant]
  15. OMEGA                                   /ARG/ [Concomitant]
  16. PROTONIX [Concomitant]
     Dosage: 40 MG, UNK
  17. PHENERGAN HCL [Concomitant]
  18. PRAVASTATIN [Concomitant]
     Dosage: 40 MG, UNK
  19. NORVASC [Concomitant]
  20. NICOTROL [Concomitant]
  21. ACTONEL [Concomitant]
     Dosage: 35 MG, UNK
  22. ADVAIR DISKUS 100/50 [Concomitant]
     Dosage: UNK, BID
  23. ALBUTEROL [Concomitant]
  24. AMITIZA [Concomitant]
  25. IRON [Concomitant]
     Dosage: 325 MG, UNK
  26. ASPIRIN [Concomitant]
     Dosage: 81 MG, UNK
  27. ASPIRIN [Concomitant]
     Dosage: 81 MG, UNK

REACTIONS (3)
  - CARDIAC DISORDER [None]
  - CHEST PAIN [None]
  - MYOCARDIAL ISCHAEMIA [None]
